FAERS Safety Report 13883108 (Version 3)
Quarter: 2017Q4

REPORT INFORMATION
  Report Type: Spontaneous
  Country: US (occurrence: US)
  Receive Date: 20170818
  Receipt Date: 20171108
  Transmission Date: 20180320
  Serious: Yes (Other)
  Sender: FDA-Public Use
  Company Number: US-TEVA-797130ACC

PATIENT
  Age: 39 Year
  Sex: Female

DRUGS (2)
  1. PARAGARD T 380A [Suspect]
     Active Substance: COPPER
     Indication: CONTRACEPTION
     Dosage: 9 YEARS
     Dates: end: 20170831
  2. IBUPROFEN. [Concomitant]
     Active Substance: IBUPROFEN

REACTIONS (5)
  - Uterine perforation [Recovered/Resolved]
  - Embedded device [Recovered/Resolved]
  - Device breakage [Recovered/Resolved]
  - Device dislocation [Recovered/Resolved]
  - Vaginal haemorrhage [Recovered/Resolved with Sequelae]

NARRATIVE: CASE EVENT DATE: 20170710
